FAERS Safety Report 8376985-8 (Version None)
Quarter: 2012Q2

REPORT INFORMATION
  Report Type: 
  Country: None (occurrence: None)
  Receive Date: 20120522
  Receipt Date: 20120507
  Transmission Date: 20120825
  Serious: No
  Sender: FDA-Public Use
  Company Number: US-ASTRAZENECA-2012SE29506

PATIENT
  Sex: Female

DRUGS (2)
  1. TAMOXIFEN CITRATE [Concomitant]
  2. ARIMIDEX [Suspect]
     Indication: BREAST CANCER
     Route: 048
     Dates: start: 20061201

REACTIONS (5)
  - PREMATURE AGEING [None]
  - SKIN WRINKLING [None]
  - ARTHRITIS [None]
  - GAIT DISTURBANCE [None]
  - LYMPHOEDEMA [None]
